FAERS Safety Report 25755770 (Version 3)
Quarter: 2025Q4

REPORT INFORMATION
  Report Type: Spontaneous
  Country: JP (occurrence: JP)
  Receive Date: 20250903
  Receipt Date: 20251029
  Transmission Date: 20260117
  Serious: Yes (Other)
  Sender: MERCK SHARP & DOHME LLC
  Company Number: JP-009507513-2324311

PATIENT
  Age: 87 Year
  Sex: Female

DRUGS (9)
  1. KEYTRUDA [Suspect]
     Active Substance: PEMBROLIZUMAB
     Indication: Uterine cancer
     Route: 041
     Dates: start: 202506
  2. LENVIMA [Suspect]
     Active Substance: LENVATINIB
     Indication: Uterine cancer
     Route: 048
     Dates: start: 20250728, end: 20250807
  3. LENVIMA [Suspect]
     Active Substance: LENVATINIB
     Indication: Uterine cancer
     Route: 048
     Dates: start: 20250822
  4. Amlodipine OD Tablet 5mg [Concomitant]
     Route: 048
     Dates: start: 20250728, end: 20250807
  5. Goofice Tablet 5mg [Concomitant]
     Route: 048
     Dates: start: 202508, end: 202508
  6. Livalo OD Tablet 2mg [Concomitant]
     Route: 048
     Dates: start: 2024, end: 20250821
  7. Bisoprolol fumarate Tablet 2.5mg [Concomitant]
     Route: 048
     Dates: start: 2024, end: 20250821
  8. Tarlige Tablet 2.5mg [Concomitant]
     Route: 048
     Dates: start: 2024, end: 20250821
  9. Edirol Capsule 0.75 microg [Concomitant]
     Route: 048
     Dates: start: 2024, end: 20250821

REACTIONS (4)
  - Dementia [Unknown]
  - Hypothyroidism [Not Recovered/Not Resolved]
  - Neuropsychological symptoms [Unknown]
  - Delirium [Recovered/Resolved]

NARRATIVE: CASE EVENT DATE: 20250801
